FAERS Safety Report 12449036 (Version 1)
Quarter: 2016Q2

REPORT INFORMATION
  Report Type: Spontaneous
  Country: None (occurrence: US)
  Receive Date: 20160608
  Receipt Date: 20160608
  Transmission Date: 20160815
  Serious: Yes (Death, Other)
  Sender: FDA-Public Use
  Company Number: US-BION-20160194

PATIENT
  Age: 24 Year
  Sex: Male

DRUGS (2)
  1. LOPRAMIDE UNKNOWN [Suspect]
     Active Substance: LOPERAMIDE
     Indication: DRUG WITHDRAWAL SYNDROME
     Route: 048
  2. BUPRENORPHINE. [Concomitant]
     Active Substance: BUPRENORPHINE
     Indication: SUBSTANCE ABUSE

REACTIONS (11)
  - Toxicity to various agents [Fatal]
  - Cardio-respiratory arrest [Fatal]
  - Cardiomegaly [Unknown]
  - Venous thrombosis limb [Unknown]
  - Product use issue [Unknown]
  - Arrhythmia [Fatal]
  - Drug abuse [Fatal]
  - Brain oedema [Unknown]
  - Urinary retention [Unknown]
  - Pulmonary oedema [Unknown]
  - Respiratory depression [Fatal]
